FAERS Safety Report 8827555 (Version 1)
Quarter: 2012Q4

REPORT INFORMATION
  Report Type: 
  Country: BR (occurrence: BR)
  Receive Date: 20121005
  Receipt Date: 20121005
  Transmission Date: 20130627
  Serious: Yes (Hospitalization)
  Sender: FDA-Public Use
  Company Number: BR-ASTRAZENECA-2012SE75396

PATIENT
  Age: 22023 Day
  Sex: Female

DRUGS (4)
  1. CRESTOR [Suspect]
     Indication: HYPERCHOLESTEROLAEMIA
     Route: 048
     Dates: start: 2010, end: 2011
  2. CRESTOR [Suspect]
     Indication: HYPERCHOLESTEROLAEMIA
     Route: 048
     Dates: start: 201209
  3. LIPITOR [Concomitant]
     Dates: start: 2011, end: 201209
  4. UNSPECIFIED [Concomitant]
     Indication: DIABETES MELLITUS

REACTIONS (2)
  - Myocardial infarction [Recovered/Resolved]
  - Gastric ulcer [Unknown]
